FAERS Safety Report 9223317 (Version 1)
Quarter: 2013Q2

REPORT INFORMATION
  Report Type: Spontaneous
  Country: FR (occurrence: FR)
  Receive Date: 20130410
  Receipt Date: 20130410
  Transmission Date: 20140414
  Serious: Yes (Hospitalization)
  Sender: FDA-Public Use
  Company Number: FR-ABBOTT-13P-056-1071766-00

PATIENT
  Age: 53 Year
  Sex: Male

DRUGS (10)
  1. NORVIR [Suspect]
     Indication: HIV TEST POSITIVE
     Route: 048
     Dates: start: 20100420, end: 20130204
  2. NORVIR [Suspect]
     Dates: start: 20130207
  3. REYATAZ [Suspect]
     Indication: HIV TEST POSITIVE
     Route: 048
     Dates: start: 20100420, end: 20100521
  4. REYATAZ [Suspect]
     Dosage: 300 MG DAILY
     Dates: start: 20100609, end: 20101130
  5. REYATAZ [Suspect]
     Dosage: 200 MG DAILY
     Dates: start: 20101130, end: 20130204
  6. PREZISTA [Suspect]
     Indication: HIV TEST POSITIVE
     Route: 048
     Dates: start: 20100521, end: 20130204
  7. PREZISTA [Suspect]
     Dates: start: 20130207
  8. IUVACOR [Concomitant]
     Indication: PRODUCT USED FOR UNKNOWN INDICATION
     Dates: start: 201110
  9. TRAMADOL [Concomitant]
     Indication: PRODUCT USED FOR UNKNOWN INDICATION
     Dates: start: 201210
  10. LAMALINE [Concomitant]
     Indication: PRODUCT USED FOR UNKNOWN INDICATION

REACTIONS (4)
  - Renal colic [Recovered/Resolved]
  - Nephrolithiasis [Recovered/Resolved with Sequelae]
  - Nephrolithiasis [Recovered/Resolved]
  - Jaundice [Unknown]
